FAERS Safety Report 12793078 (Version 1)
Quarter: 2016Q3

REPORT INFORMATION
  Report Type: Spontaneous
  Country: US (occurrence: US)
  Receive Date: 20160929
  Receipt Date: 20160929
  Transmission Date: 20161109
  Serious: Yes (Hospitalization)
  Sender: FDA-Public Use
  Company Number: None

PATIENT
  Age: 72 Year
  Sex: Male

DRUGS (16)
  1. AMLODIPINE [Concomitant]
     Active Substance: AMLODIPINE BESYLATE
  2. METFORMIN [Concomitant]
     Active Substance: METFORMIN HYDROCHLORIDE
  3. LANTUS [Concomitant]
     Active Substance: INSULIN GLARGINE
  4. TRUETEST [Concomitant]
  5. FUROSEMIDE. [Concomitant]
     Active Substance: FUROSEMIDE
  6. OXYCODONE AND ACETAMINOPHEN [Concomitant]
     Active Substance: ACETAMINOPHEN\OXYCODONE HYDROCHLORIDE
  7. OMEPRAZOLE. [Concomitant]
     Active Substance: OMEPRAZOLE
  8. POT CL [Concomitant]
  9. TAMSULOSIN [Concomitant]
     Active Substance: TAMSULOSIN
  10. ZYTIGA [Suspect]
     Active Substance: ABIRATERONE ACETATE
     Indication: PROSTATE CANCER
     Route: 048
     Dates: start: 201608
  11. POLYETH GLYC [Concomitant]
     Active Substance: POLYETHYLENE GLYCOLS
  12. THN LANCETS [Concomitant]
  13. BD PEN NEEDL [Concomitant]
  14. NIFEDIPINE. [Concomitant]
     Active Substance: NIFEDIPINE
  15. LISINOPRIL. [Concomitant]
     Active Substance: LISINOPRIL
  16. POLYETH GLYC [Concomitant]
     Active Substance: POLYETHYLENE GLYCOLS

REACTIONS (6)
  - Nausea [None]
  - Weight decreased [None]
  - Decreased appetite [None]
  - Blood potassium decreased [None]
  - Peripheral swelling [None]
  - Hypertension [None]

NARRATIVE: CASE EVENT DATE: 20160907
